FAERS Safety Report 9162099 (Version 1)
Quarter: 2013Q1

REPORT INFORMATION
  Report Type: Spontaneous
  Country: GB (occurrence: None)
  Receive Date: 20130222
  Receipt Date: 20130222
  Transmission Date: 20140127
  Serious: Yes (Other)
  Sender: FDA-Public Use
  Company Number: 1605546

PATIENT
  Sex: Female

DRUGS (3)
  1. METHOTREXATE [Suspect]
     Indication: ANKYLOSING SPONDYLITIS
     Dosage: TAKEN FOR AT LEAST 5 YEARS, UNKNOWN, UNKNOWN
     Dates: end: 20130111
  2. NORETHISTERONE [Suspect]
     Indication: MENORRHAGIA
     Dosage: STRENGTH 5 MG; THERAPY INITIATED 12 WEEKS AGO (UNKNOWN)
     Dates: end: 20130111
  3. ADALIMUMAB [Suspect]
     Indication: ANKYLOSING SPONDYLITIS
     Dosage: SINCE 2008, UNKNOWN, UNKNOWN
     Dates: end: 20130111

REACTIONS (2)
  - Drug interaction [None]
  - Liver function test abnormal [None]
